FAERS Safety Report 4436447-7 (Version None)
Quarter: 2004Q3

REPORT INFORMATION
  Report Type: 
  Country: None (occurrence: None)
  Receive Date: 20040830
  Receipt Date: 20040514
  Transmission Date: 20050211
  Serious: No
  Sender: FDA-Public Use
  Company Number: US-BRISTOL-MYERS SQUIBB COMPANY-12588059

PATIENT
  Age: 50 Year
  Sex: Female

DRUGS (8)
  1. ABILIFY [Suspect]
     Indication: BIPOLAR DISORDER
     Route: 048
     Dates: start: 20040312
  2. ZOLOFT [Concomitant]
  3. PROVIGIL [Concomitant]
  4. DIAMOX [Concomitant]
  5. ZANAFLEX [Concomitant]
  6. KLONOPIN [Concomitant]
  7. TRAZODONE HCL [Concomitant]
  8. LAMICTAL [Concomitant]

REACTIONS (1)
  - TREMOR [None]
